FAERS Safety Report 9723066 (Version 1)
Quarter: 2013Q4

REPORT INFORMATION
  Report Type: Report from Study
  Country: US (occurrence: US)
  Receive Date: 20131202
  Receipt Date: 20131202
  Transmission Date: 20140711
  Serious: No
  Sender: FDA-Public Use
  Company Number: US-009507513-1309USA010326

PATIENT
  Age: 24 Year
  Sex: Female
  Weight: 48.73 kg

DRUGS (1)
  1. IMPLANON [Suspect]
     Indication: PRODUCT USED FOR UNKNOWN INDICATION
     Dosage: UNK
     Route: 059
     Dates: start: 20121016, end: 20130919

REACTIONS (2)
  - Haemorrhage [Unknown]
  - Medical device removal [Recovered/Resolved]
